FAERS Safety Report 7902375-5 (Version None)
Quarter: 2011Q4

REPORT INFORMATION
  Report Type: 
  Country: None (occurrence: None)
  Receive Date: 20111108
  Receipt Date: 20111107
  Transmission Date: 20120403
  Serious: Yes (Life-Threatening)
  Sender: FDA-Public Use
  Company Number: FR-PFIZER INC-2011272721

PATIENT
  Age: 86 Year

DRUGS (4)
  1. PROPRANOLOL [Suspect]
     Dosage: 20 MG, 1X/DAY
     Route: 048
     Dates: start: 20111018, end: 20111018
  2. CIPRALAN [Suspect]
     Dosage: 130 MG, 1X/DAY
     Route: 048
     Dates: start: 20111018, end: 20111018
  3. FLECAINIDE ACETATE [Suspect]
     Dosage: 50 MG, 2X/DAY
     Route: 048
     Dates: end: 20111001
  4. FLECAINIDE ACETATE [Suspect]
     Dosage: 75 MG, 2X/DAY
     Route: 048
     Dates: start: 20111007, end: 20111017

REACTIONS (1)
  - CARDIAC ARREST [None]
